FAERS Safety Report 14813909 (Version 1)
Quarter: 2018Q2

REPORT INFORMATION
  Report Type: Spontaneous
  Country: FR (occurrence: FR)
  Receive Date: 20180426
  Receipt Date: 20180426
  Transmission Date: 20180711
  Serious: Yes (Other)
  Sender: FDA-Public Use
  Company Number: FR-MERCK KGAA-2046578

PATIENT
  Age: 64 Year
  Sex: Female

DRUGS (1)
  1. NOVOTHYROX [Suspect]
     Active Substance: LEVOTHYROXINE SODIUM
     Indication: PRODUCT USED FOR UNKNOWN INDICATION

REACTIONS (13)
  - Headache [Recovered/Resolved]
  - Asthenia [Recovered/Resolved]
  - Marital problem [Recovered/Resolved]
  - Presyncope [Recovered/Resolved]
  - Dysstasia [Recovered/Resolved]
  - Feeling cold [Recovered/Resolved]
  - Aggression [Recovered/Resolved]
  - Diarrhoea [Recovered/Resolved]
  - Vomiting [Recovered/Resolved]
  - Loss of personal independence in daily activities [Recovered/Resolved]
  - Abdominal pain upper [Recovered/Resolved]
  - Loss of consciousness [Recovered/Resolved]
  - Asocial behaviour [Recovered/Resolved]
